FAERS Safety Report 10082079 (Version 1)
Quarter: 2014Q2

REPORT INFORMATION
  Report Type: Report from Study
  Country: PE (occurrence: PE)
  Receive Date: 20140416
  Receipt Date: 20140416
  Transmission Date: 20141212
  Serious: Yes (Hospitalization, Other)
  Sender: FDA-Public Use
  Company Number: PE-BRISTOL-MYERS SQUIBB COMPANY-20612941

PATIENT
  Age: 24 Year
  Sex: Male
  Weight: 47.5 kg

DRUGS (2)
  1. EFAVIRENZ [Suspect]
     Indication: HIV INFECTION
     Dosage: LAST ADM:15MAY12
     Route: 048
     Dates: start: 20110210, end: 20120515
  2. LAMIVUDINE + ZIDOVUDINE [Suspect]
     Indication: HIV INFECTION
     Dosage: LAST ADM: 15MAR12
     Route: 048
     Dates: start: 20110210, end: 20120515

REACTIONS (3)
  - Foot fracture [Recovered/Resolved]
  - Contusion [Unknown]
  - Fall [Unknown]
